FAERS Safety Report 5692308-7 (Version None)
Quarter: 2008Q1

REPORT INFORMATION
  Report Type: 
  Country: None (occurrence: None)
  Receive Date: 20080331
  Receipt Date: 20080325
  Transmission Date: 20080703
  Serious: Yes (Other)
  Sender: FDA-Public Use
  Company Number: GXKR2008DE02881

PATIENT

DRUGS (1)
  1. BISOHEXAL (NGX)(BISOPROLOL) FILM-COATED TABLET [Suspect]
     Dosage: ESTIMATED DOSE OF 5 MG, ORAL
     Route: 048

REACTIONS (2)
  - BRADYCARDIA [None]
  - LOSS OF CONSCIOUSNESS [None]
